FAERS Safety Report 25469133 (Version 3)
Quarter: 2025Q3

REPORT INFORMATION
  Report Type: Report from Study
  Country: EU (occurrence: EU)
  Receive Date: 20250623
  Receipt Date: 20250804
  Transmission Date: 20251020
  Serious: Yes (Life-Threatening, Hospitalization, Other)
  Sender: MYLAN
  Company Number: EU-CELLTRION INC.-2025AT017598

PATIENT
  Age: 58 Year
  Sex: Female
  Weight: 52.9 kg

DRUGS (136)
  1. LENALIDOMIDE [Suspect]
     Active Substance: LENALIDOMIDE
     Indication: Diffuse large B-cell lymphoma
     Dates: start: 20220603, end: 20220817
  2. LENALIDOMIDE [Suspect]
     Active Substance: LENALIDOMIDE
     Dates: start: 20220603, end: 20220817
  3. LENALIDOMIDE [Suspect]
     Active Substance: LENALIDOMIDE
     Route: 048
     Dates: start: 20220603, end: 20220817
  4. LENALIDOMIDE [Suspect]
     Active Substance: LENALIDOMIDE
     Route: 048
     Dates: start: 20220603, end: 20220817
  5. LENALIDOMIDE [Suspect]
     Active Substance: LENALIDOMIDE
  6. LENALIDOMIDE [Suspect]
     Active Substance: LENALIDOMIDE
  7. LENALIDOMIDE [Suspect]
     Active Substance: LENALIDOMIDE
     Route: 048
  8. LENALIDOMIDE [Suspect]
     Active Substance: LENALIDOMIDE
     Route: 048
  9. RITUXIMAB [Suspect]
     Active Substance: RITUXIMAB
     Indication: Diffuse large B-cell lymphoma
     Dosage: 375 MILLIGRAM/SQ. METER EVERY 3 WEEKS
     Dates: start: 20220603
  10. RITUXIMAB [Suspect]
     Active Substance: RITUXIMAB
     Dosage: 375 MILLIGRAM/SQ. METER EVERY 3 WEEKS
     Dates: start: 20220603
  11. RITUXIMAB [Suspect]
     Active Substance: RITUXIMAB
     Dosage: 375 MILLIGRAM/SQ. METER EVERY 3 WEEKS
     Route: 042
     Dates: start: 20220603
  12. RITUXIMAB [Suspect]
     Active Substance: RITUXIMAB
     Dosage: 375 MILLIGRAM/SQ. METER EVERY 3 WEEKS
     Route: 042
     Dates: start: 20220603
  13. RITUXIMAB [Suspect]
     Active Substance: RITUXIMAB
     Dosage: 375 MILLIGRAM/SQ. METER EVERY 3 WEEKS
     Dates: start: 20220809
  14. RITUXIMAB [Suspect]
     Active Substance: RITUXIMAB
     Dosage: 375 MILLIGRAM/SQ. METER EVERY 3 WEEKS
     Dates: start: 20220809
  15. RITUXIMAB [Suspect]
     Active Substance: RITUXIMAB
     Dosage: 375 MILLIGRAM/SQ. METER EVERY 3 WEEKS
     Route: 042
     Dates: start: 20220809
  16. RITUXIMAB [Suspect]
     Active Substance: RITUXIMAB
     Dosage: 375 MILLIGRAM/SQ. METER EVERY 3 WEEKS
     Route: 042
     Dates: start: 20220809
  17. TAFASITAMAB [Suspect]
     Active Substance: TAFASITAMAB
     Indication: Diffuse large B-cell lymphoma
     Dosage: 12 MILLIGRAM/KILOGRAM IV EVERY WEEK (~REGIMEN #1; BLINDED, INFORMATION WITHHELD)
     Dates: start: 20220603, end: 20220817
  18. TAFASITAMAB [Suspect]
     Active Substance: TAFASITAMAB
     Dosage: 12 MILLIGRAM/KILOGRAM IV EVERY WEEK (~REGIMEN #1; BLINDED, INFORMATION WITHHELD)
     Dates: start: 20220603, end: 20220817
  19. TAFASITAMAB [Suspect]
     Active Substance: TAFASITAMAB
     Dosage: 12 MILLIGRAM/KILOGRAM IV EVERY WEEK (~REGIMEN #1; BLINDED, INFORMATION WITHHELD)
     Route: 042
     Dates: start: 20220603, end: 20220817
  20. TAFASITAMAB [Suspect]
     Active Substance: TAFASITAMAB
     Dosage: 12 MILLIGRAM/KILOGRAM IV EVERY WEEK (~REGIMEN #1; BLINDED, INFORMATION WITHHELD)
     Route: 042
     Dates: start: 20220603, end: 20220817
  21. TAFASITAMAB [Suspect]
     Active Substance: TAFASITAMAB
     Dosage: 12 MILLIGRAM/KILOGRAM IV EVERY WEEK
     Dates: start: 20220809
  22. TAFASITAMAB [Suspect]
     Active Substance: TAFASITAMAB
     Dosage: 12 MILLIGRAM/KILOGRAM IV EVERY WEEK
     Dates: start: 20220809
  23. TAFASITAMAB [Suspect]
     Active Substance: TAFASITAMAB
     Dosage: 12 MILLIGRAM/KILOGRAM IV EVERY WEEK
     Route: 042
     Dates: start: 20220809
  24. TAFASITAMAB [Suspect]
     Active Substance: TAFASITAMAB
     Dosage: 12 MILLIGRAM/KILOGRAM IV EVERY WEEK
     Route: 042
     Dates: start: 20220809
  25. TAFASITAMAB [Suspect]
     Active Substance: TAFASITAMAB
     Dosage: 12 MILLIGRAM/KILOGRAM IV EVERY WEEK (REGIMEN #2; BLINDED, INFORMATION WITHHELD (REGIMEN #2; BLINDED, INFORMATION WITHHELD)
     Dates: start: 20220824
  26. TAFASITAMAB [Suspect]
     Active Substance: TAFASITAMAB
     Dosage: 12 MILLIGRAM/KILOGRAM IV EVERY WEEK (REGIMEN #2; BLINDED, INFORMATION WITHHELD (REGIMEN #2; BLINDED, INFORMATION WITHHELD)
     Route: 042
     Dates: start: 20220824
  27. TAFASITAMAB [Suspect]
     Active Substance: TAFASITAMAB
     Dosage: 12 MILLIGRAM/KILOGRAM IV EVERY WEEK (REGIMEN #2; BLINDED, INFORMATION WITHHELD (REGIMEN #2; BLINDED, INFORMATION WITHHELD)
     Dates: start: 20220824
  28. TAFASITAMAB [Suspect]
     Active Substance: TAFASITAMAB
     Dosage: 12 MILLIGRAM/KILOGRAM IV EVERY WEEK (REGIMEN #2; BLINDED, INFORMATION WITHHELD (REGIMEN #2; BLINDED, INFORMATION WITHHELD)
     Route: 042
     Dates: start: 20220824
  29. CYCLOPHOSPHAMIDE [Suspect]
     Active Substance: CYCLOPHOSPHAMIDE
     Indication: Diffuse large B-cell lymphoma
     Dosage: 750 MILLIGRAM/SQ. METER EVERY 3 WEEKS
     Dates: start: 20220603
  30. CYCLOPHOSPHAMIDE [Suspect]
     Active Substance: CYCLOPHOSPHAMIDE
     Dosage: 750 MILLIGRAM/SQ. METER EVERY 3 WEEKS
     Dates: start: 20220603
  31. CYCLOPHOSPHAMIDE [Suspect]
     Active Substance: CYCLOPHOSPHAMIDE
     Dosage: 750 MILLIGRAM/SQ. METER EVERY 3 WEEKS
     Route: 042
     Dates: start: 20220603
  32. CYCLOPHOSPHAMIDE [Suspect]
     Active Substance: CYCLOPHOSPHAMIDE
     Dosage: 750 MILLIGRAM/SQ. METER EVERY 3 WEEKS
     Route: 042
     Dates: start: 20220603
  33. CYCLOPHOSPHAMIDE [Suspect]
     Active Substance: CYCLOPHOSPHAMIDE
     Dosage: 750 MILLIGRAM/SQ. METER EVERY 3 WEEKS
     Dates: start: 20220809
  34. CYCLOPHOSPHAMIDE [Suspect]
     Active Substance: CYCLOPHOSPHAMIDE
     Dosage: 750 MILLIGRAM/SQ. METER EVERY 3 WEEKS
     Dates: start: 20220809
  35. CYCLOPHOSPHAMIDE [Suspect]
     Active Substance: CYCLOPHOSPHAMIDE
     Dosage: 750 MILLIGRAM/SQ. METER EVERY 3 WEEKS
     Route: 042
     Dates: start: 20220809
  36. CYCLOPHOSPHAMIDE [Suspect]
     Active Substance: CYCLOPHOSPHAMIDE
     Dosage: 750 MILLIGRAM/SQ. METER EVERY 3 WEEKS
     Route: 042
     Dates: start: 20220809
  37. DOXORUBICIN [Suspect]
     Active Substance: DOXORUBICIN
     Indication: Diffuse large B-cell lymphoma
     Dosage: 50 MILLIGRAM/SQ. METER EVERY 2 WEEKS (REGIMEN #1R-CHOP)
     Dates: start: 20220603
  38. DOXORUBICIN [Suspect]
     Active Substance: DOXORUBICIN
     Dosage: 50 MILLIGRAM/SQ. METER EVERY 2 WEEKS (REGIMEN #1R-CHOP)
     Dates: start: 20220603
  39. DOXORUBICIN [Suspect]
     Active Substance: DOXORUBICIN
     Dosage: 50 MILLIGRAM/SQ. METER EVERY 2 WEEKS (REGIMEN #1R-CHOP)
     Route: 042
     Dates: start: 20220603
  40. DOXORUBICIN [Suspect]
     Active Substance: DOXORUBICIN
     Dosage: 50 MILLIGRAM/SQ. METER EVERY 2 WEEKS (REGIMEN #1R-CHOP)
     Route: 042
     Dates: start: 20220603
  41. DOXORUBICIN [Suspect]
     Active Substance: DOXORUBICIN
     Dosage: 50 MILLIGRAM/SQ. METER EVERY 2 WEEKS
     Dates: start: 20220809
  42. DOXORUBICIN [Suspect]
     Active Substance: DOXORUBICIN
     Dosage: 50 MILLIGRAM/SQ. METER EVERY 2 WEEKS
     Dates: start: 20220809
  43. DOXORUBICIN [Suspect]
     Active Substance: DOXORUBICIN
     Dosage: 50 MILLIGRAM/SQ. METER EVERY 2 WEEKS
     Route: 042
     Dates: start: 20220809
  44. DOXORUBICIN [Suspect]
     Active Substance: DOXORUBICIN
     Dosage: 50 MILLIGRAM/SQ. METER EVERY 2 WEEKS
     Route: 042
     Dates: start: 20220809
  45. VINCRISTINE [Suspect]
     Active Substance: VINCRISTINE
     Indication: Diffuse large B-cell lymphoma
     Dosage: 1.3 MILLIGRAM/SQ. METER EVERY 3 WEEKS (REGIMEN #1R-CHOP)
     Dates: start: 20220603
  46. VINCRISTINE [Suspect]
     Active Substance: VINCRISTINE
     Dosage: 1.3 MILLIGRAM/SQ. METER EVERY 3 WEEKS (REGIMEN #1R-CHOP)
     Dates: start: 20220603
  47. VINCRISTINE [Suspect]
     Active Substance: VINCRISTINE
     Dosage: 1.3 MILLIGRAM/SQ. METER EVERY 3 WEEKS (REGIMEN #1R-CHOP)
     Route: 042
     Dates: start: 20220603
  48. VINCRISTINE [Suspect]
     Active Substance: VINCRISTINE
     Dosage: 1.3 MILLIGRAM/SQ. METER EVERY 3 WEEKS (REGIMEN #1R-CHOP)
     Route: 042
     Dates: start: 20220603
  49. VINCRISTINE [Suspect]
     Active Substance: VINCRISTINE
     Dosage: 1.3 MILLIGRAM/SQ. METER EVERY 3 WEEKS
     Dates: start: 20220809
  50. VINCRISTINE [Suspect]
     Active Substance: VINCRISTINE
     Dosage: 1.3 MILLIGRAM/SQ. METER EVERY 3 WEEKS
     Dates: start: 20220809
  51. VINCRISTINE [Suspect]
     Active Substance: VINCRISTINE
     Dosage: 1.3 MILLIGRAM/SQ. METER EVERY 3 WEEKS
     Route: 042
     Dates: start: 20220809
  52. VINCRISTINE [Suspect]
     Active Substance: VINCRISTINE
     Dosage: 1.3 MILLIGRAM/SQ. METER EVERY 3 WEEKS
     Route: 042
     Dates: start: 20220809
  53. PREDNISOLONE [Suspect]
     Active Substance: PREDNISOLONE
     Indication: Diffuse large B-cell lymphoma
     Dosage: 100 MILLIGRAM EVERY 3 WEEKS
     Dates: start: 20220603
  54. PREDNISOLONE [Suspect]
     Active Substance: PREDNISOLONE
     Dosage: 100 MILLIGRAM EVERY 3 WEEKS
     Dates: start: 20220603
  55. PREDNISOLONE [Suspect]
     Active Substance: PREDNISOLONE
     Dosage: 100 MILLIGRAM EVERY 3 WEEKS
     Route: 042
     Dates: start: 20220603
  56. PREDNISOLONE [Suspect]
     Active Substance: PREDNISOLONE
     Dosage: 100 MILLIGRAM EVERY 3 WEEKS
     Route: 042
     Dates: start: 20220603
  57. PREDNISOLONE [Suspect]
     Active Substance: PREDNISOLONE
     Dosage: 100 MILLIGRAM EVERY 3 WEEKS
     Dates: start: 20220809
  58. PREDNISOLONE [Suspect]
     Active Substance: PREDNISOLONE
     Dosage: 100 MILLIGRAM EVERY 3 WEEKS
     Dates: start: 20220809
  59. PREDNISOLONE [Suspect]
     Active Substance: PREDNISOLONE
     Dosage: 100 MILLIGRAM EVERY 3 WEEKS
     Route: 042
     Dates: start: 20220809
  60. PREDNISOLONE [Suspect]
     Active Substance: PREDNISOLONE
     Dosage: 100 MILLIGRAM EVERY 3 WEEKS
     Route: 042
     Dates: start: 20220809
  61. PANTOPRAZOLE SODIUM [Concomitant]
     Active Substance: PANTOPRAZOLE SODIUM
  62. PANTOPRAZOLE SODIUM [Concomitant]
     Active Substance: PANTOPRAZOLE SODIUM
     Route: 065
  63. PANTOPRAZOLE SODIUM [Concomitant]
     Active Substance: PANTOPRAZOLE SODIUM
     Route: 065
  64. PANTOPRAZOLE SODIUM [Concomitant]
     Active Substance: PANTOPRAZOLE SODIUM
  65. ASPIRIN [Concomitant]
     Active Substance: ASPIRIN
  66. ASPIRIN [Concomitant]
     Active Substance: ASPIRIN
     Route: 065
  67. ASPIRIN [Concomitant]
     Active Substance: ASPIRIN
     Route: 065
  68. ASPIRIN [Concomitant]
     Active Substance: ASPIRIN
  69. Lidaprim [Concomitant]
  70. Lidaprim [Concomitant]
     Route: 065
  71. Lidaprim [Concomitant]
     Route: 065
  72. Lidaprim [Concomitant]
  73. VALACYCLOVIR HYDROCHLORIDE [Concomitant]
     Active Substance: VALACYCLOVIR HYDROCHLORIDE
  74. VALACYCLOVIR HYDROCHLORIDE [Concomitant]
     Active Substance: VALACYCLOVIR HYDROCHLORIDE
     Route: 065
  75. VALACYCLOVIR HYDROCHLORIDE [Concomitant]
     Active Substance: VALACYCLOVIR HYDROCHLORIDE
     Route: 065
  76. VALACYCLOVIR HYDROCHLORIDE [Concomitant]
     Active Substance: VALACYCLOVIR HYDROCHLORIDE
  77. Passedan [Concomitant]
  78. Passedan [Concomitant]
     Route: 065
  79. Passedan [Concomitant]
     Route: 065
  80. Passedan [Concomitant]
  81. Paspertin [Concomitant]
  82. Paspertin [Concomitant]
     Route: 065
  83. Paspertin [Concomitant]
     Route: 065
  84. Paspertin [Concomitant]
  85. ACETAMINOPHEN [Concomitant]
     Active Substance: ACETAMINOPHEN
  86. ACETAMINOPHEN [Concomitant]
     Active Substance: ACETAMINOPHEN
     Route: 065
  87. ACETAMINOPHEN [Concomitant]
     Active Substance: ACETAMINOPHEN
     Route: 065
  88. ACETAMINOPHEN [Concomitant]
     Active Substance: ACETAMINOPHEN
  89. ONDANSETRON HYDROCHLORIDE [Concomitant]
     Active Substance: ONDANSETRON HYDROCHLORIDE
  90. ONDANSETRON HYDROCHLORIDE [Concomitant]
     Active Substance: ONDANSETRON HYDROCHLORIDE
     Route: 065
  91. ONDANSETRON HYDROCHLORIDE [Concomitant]
     Active Substance: ONDANSETRON HYDROCHLORIDE
     Route: 065
  92. ONDANSETRON HYDROCHLORIDE [Concomitant]
     Active Substance: ONDANSETRON HYDROCHLORIDE
  93. Laxogol [Concomitant]
  94. Laxogol [Concomitant]
     Route: 065
  95. Laxogol [Concomitant]
     Route: 065
  96. Laxogol [Concomitant]
  97. IMODIUM [Concomitant]
     Active Substance: LOPERAMIDE HYDROCHLORIDE
  98. IMODIUM [Concomitant]
     Active Substance: LOPERAMIDE HYDROCHLORIDE
     Route: 065
  99. IMODIUM [Concomitant]
     Active Substance: LOPERAMIDE HYDROCHLORIDE
     Route: 065
  100. IMODIUM [Concomitant]
     Active Substance: LOPERAMIDE HYDROCHLORIDE
  101. DEXIBUPROFEN [Concomitant]
     Active Substance: DEXIBUPROFEN
  102. DEXIBUPROFEN [Concomitant]
     Active Substance: DEXIBUPROFEN
     Route: 065
  103. DEXIBUPROFEN [Concomitant]
     Active Substance: DEXIBUPROFEN
     Route: 065
  104. DEXIBUPROFEN [Concomitant]
     Active Substance: DEXIBUPROFEN
  105. ZYPREXA [Concomitant]
     Active Substance: OLANZAPINE
  106. ZYPREXA [Concomitant]
     Active Substance: OLANZAPINE
     Route: 065
  107. ZYPREXA [Concomitant]
     Active Substance: OLANZAPINE
     Route: 065
  108. ZYPREXA [Concomitant]
     Active Substance: OLANZAPINE
  109. BISOPROLOL FUMARATE [Concomitant]
     Active Substance: BISOPROLOL FUMARATE
  110. BISOPROLOL FUMARATE [Concomitant]
     Active Substance: BISOPROLOL FUMARATE
     Route: 065
  111. BISOPROLOL FUMARATE [Concomitant]
     Active Substance: BISOPROLOL FUMARATE
     Route: 065
  112. BISOPROLOL FUMARATE [Concomitant]
     Active Substance: BISOPROLOL FUMARATE
  113. Glandomed [Concomitant]
  114. Glandomed [Concomitant]
     Route: 065
  115. Glandomed [Concomitant]
     Route: 065
  116. Glandomed [Concomitant]
  117. ERYTHROPOIETIN [Concomitant]
     Active Substance: ERYTHROPOIETIN
  118. ERYTHROPOIETIN [Concomitant]
     Active Substance: ERYTHROPOIETIN
     Route: 065
  119. ERYTHROPOIETIN [Concomitant]
     Active Substance: ERYTHROPOIETIN
     Route: 065
  120. ERYTHROPOIETIN [Concomitant]
     Active Substance: ERYTHROPOIETIN
  121. TRAZODONE HYDROCHLORIDE [Concomitant]
     Active Substance: TRAZODONE HYDROCHLORIDE
  122. TRAZODONE HYDROCHLORIDE [Concomitant]
     Active Substance: TRAZODONE HYDROCHLORIDE
     Route: 065
  123. TRAZODONE HYDROCHLORIDE [Concomitant]
     Active Substance: TRAZODONE HYDROCHLORIDE
     Route: 065
  124. TRAZODONE HYDROCHLORIDE [Concomitant]
     Active Substance: TRAZODONE HYDROCHLORIDE
  125. MAGNESIUM [Concomitant]
     Active Substance: MAGNESIUM
  126. MAGNESIUM [Concomitant]
     Active Substance: MAGNESIUM
     Route: 065
  127. MAGNESIUM [Concomitant]
     Active Substance: MAGNESIUM
     Route: 065
  128. MAGNESIUM [Concomitant]
     Active Substance: MAGNESIUM
  129. Akynzeo [Concomitant]
  130. Akynzeo [Concomitant]
     Route: 065
  131. Akynzeo [Concomitant]
     Route: 065
  132. Akynzeo [Concomitant]
  133. Ovestinon [Concomitant]
  134. Ovestinon [Concomitant]
     Route: 065
  135. Ovestinon [Concomitant]
     Route: 065
  136. Ovestinon [Concomitant]

REACTIONS (4)
  - Neutropenia [Recovered/Resolved]
  - Infection [Recovered/Resolved]
  - Bacterial infection [Recovered/Resolved]
  - Product use issue [Unknown]

NARRATIVE: CASE EVENT DATE: 20220817
